FAERS Safety Report 6418476-7 (Version None)
Quarter: 2009Q4

REPORT INFORMATION
  Report Type: 
  Country: None (occurrence: None)
  Receive Date: 20091021
  Receipt Date: 20090713
  Transmission Date: 20100525
  Serious: No
  Sender: FDA-Public Use
  Company Number: ALL1-2009-01910

PATIENT
  Age: 32 Year
  Sex: Male
  Weight: 81.6 kg

DRUGS (4)
  1. VYVANSE [Suspect]
     Indication: ATTENTION DEFICIT/HYPERACTIVITY DISORDER
     Dosage: 20 MG, 1X/DAY:QD, ORAL : 40 MG, 1X/DAY:QD (2) 20MG CAPSULES, ORAL
     Route: 048
     Dates: start: 20090627, end: 20090601
  2. VYVANSE [Suspect]
     Indication: ATTENTION DEFICIT/HYPERACTIVITY DISORDER
     Dosage: 20 MG, 1X/DAY:QD, ORAL : 40 MG, 1X/DAY:QD (2) 20MG CAPSULES, ORAL
     Route: 048
     Dates: start: 20090622, end: 20090626
  3. VYVANSE [Suspect]
     Dosage: 60 MG, 1X/DAY:QD (3) 20MG CAPSULES, ORAL : 80 MG, ONE DOSE, ORAL
     Route: 048
     Dates: start: 20090601, end: 20090711
  4. VYVANSE [Suspect]
     Dosage: 60 MG, 1X/DAY:QD (3) 20MG CAPSULES, ORAL : 80 MG, ONE DOSE, ORAL
     Route: 048
     Dates: start: 20090712, end: 20090712

REACTIONS (6)
  - APATHY [None]
  - DRUG INEFFECTIVE [None]
  - FATIGUE [None]
  - HUNGER [None]
  - INTENTIONAL DRUG MISUSE [None]
  - INTENTIONAL OVERDOSE [None]
